FAERS Safety Report 5805843-5 (Version None)
Quarter: 2008Q3

REPORT INFORMATION
  Report Type: 
  Country: None (occurrence: None)
  Receive Date: 20080709
  Receipt Date: 20080709
  Transmission Date: 20090109
  Serious: Yes (Hospitalization)
  Sender: FDA-Public Use
  Company Number: None

PATIENT
  Age: 91 Year
  Sex: Female
  Weight: 57 kg

DRUGS (1)
  1. ASPIRIN AND DIPYRIDAMOLE [Suspect]
     Indication: ATRIAL FIBRILLATION
     Dosage: 25/200 MG BID PO
     Route: 048
     Dates: start: 20070326, end: 20080423

REACTIONS (5)
  - CONFUSIONAL STATE [None]
  - FALL [None]
  - HEAD INJURY [None]
  - HEADACHE [None]
  - JOINT INJURY [None]
